FAERS Safety Report 6707109-8 (Version None)
Quarter: 2010Q2

REPORT INFORMATION
  Report Type: 
  Country: None (occurrence: None)
  Receive Date: 20100503
  Receipt Date: 20100426
  Transmission Date: 20101027
  Serious: Yes (Other)
  Sender: FDA-Public Use
  Company Number: A0857528A

PATIENT
  Age: 38 Year
  Sex: Female
  Weight: 61.4 kg

DRUGS (6)
  1. WELLBUTRIN [Suspect]
     Indication: SMOKING CESSATION THERAPY
     Dosage: 400MG TWICE PER DAY
     Route: 048
     Dates: end: 20100309
  2. CHANTIX [Suspect]
     Indication: SMOKING CESSATION THERAPY
     Dosage: .5MG PER DAY
     Route: 048
     Dates: start: 20100315
  3. MECLIZINE [Concomitant]
     Indication: NAUSEA
     Dosage: 25MG PER DAY
  4. NEXIUM [Concomitant]
     Dosage: 40MG PER DAY
     Route: 048
  5. ALLEGRA [Concomitant]
     Dosage: 60MG TWICE PER DAY
  6. CEPHALEXIN [Concomitant]
     Indication: SKIN DISORDER
     Dosage: 250MG PER DAY

REACTIONS (7)
  - FATIGUE [None]
  - HEART RATE INCREASED [None]
  - MEMORY IMPAIRMENT [None]
  - NAUSEA [None]
  - NIGHTMARE [None]
  - SOMNOLENCE [None]
  - TREMOR [None]
